FAERS Safety Report 9688135 (Version 7)
Quarter: 2015Q2

REPORT INFORMATION
  Report Type: Spontaneous
  Country: US (occurrence: US)
  Receive Date: 20131114
  Receipt Date: 20150515
  Transmission Date: 20150821
  Serious: Yes (Hospitalization, Disabling, Other)
  Sender: FDA-Public Use
  Company Number: US-009507513-1311USA004478

PATIENT
  Sex: Female
  Weight: 132.43 kg

DRUGS (5)
  1. CALCIUM (UNSPECIFIED) [Concomitant]
     Active Substance: CALCIUM
     Dosage: 500 MG, BID
     Dates: start: 2000
  2. BONIVA [Suspect]
     Active Substance: IBANDRONATE SODIUM
     Indication: OSTEOPENIA
     Dosage: 150 MG, UNK
     Route: 048
     Dates: start: 20100607, end: 201103
  3. VITAMINS (UNSPECIFIED) [Concomitant]
     Active Substance: VITAMINS
     Dosage: 2000 UNK, UNK
     Dates: start: 2000
  4. ALENDRONATE SODIUM. [Suspect]
     Active Substance: ALENDRONATE SODIUM
     Indication: OSTEOPENIA
     Dosage: 70 MG, UNK
     Route: 048
     Dates: start: 20070927, end: 20090803
  5. FOSAMAX [Suspect]
     Active Substance: ALENDRONATE SODIUM
     Indication: OSTEOPENIA
     Dosage: 70 MG, UNK
     Route: 048
     Dates: start: 20020603, end: 20080220

REACTIONS (39)
  - Femur fracture [Not Recovered/Not Resolved]
  - Incisional hernia [Unknown]
  - Anxiety [Unknown]
  - Diabetes mellitus [Unknown]
  - Mitral valve prolapse [Unknown]
  - Radiotherapy [Unknown]
  - Synovial cyst [Unknown]
  - Stress fracture [Not Recovered/Not Resolved]
  - Low turnover osteopathy [Not Recovered/Not Resolved]
  - Joint arthroplasty [Unknown]
  - Cubital tunnel syndrome [Unknown]
  - Hypertension [Unknown]
  - Depression [Unknown]
  - Periprosthetic fracture [Unknown]
  - Haemorrhage intracranial [Unknown]
  - Internal fixation of fracture [Unknown]
  - Internal fixation of fracture [Unknown]
  - Hypothyroidism [Unknown]
  - Intramedullary rod insertion [Unknown]
  - Fracture nonunion [Unknown]
  - Fracture nonunion [Unknown]
  - Lower limb fracture [Unknown]
  - Foot fracture [Recovered/Resolved]
  - Bone graft [Unknown]
  - Adverse event [Unknown]
  - Sleep apnoea syndrome [Unknown]
  - Oral surgery [Unknown]
  - Carpal tunnel syndrome [Unknown]
  - Cerebrovascular accident [Unknown]
  - Endometrial cancer [Unknown]
  - Knee arthroplasty [Recovering/Resolving]
  - Hysterectomy [Unknown]
  - Breast cyst [Unknown]
  - Cyst [Unknown]
  - Cardiomegaly [Unknown]
  - Osteoporosis [Not Recovered/Not Resolved]
  - Femur fracture [Not Recovered/Not Resolved]
  - Arthritis [Unknown]
  - Haemorrhagic anaemia [Unknown]

NARRATIVE: CASE EVENT DATE: 2005
